FAERS Safety Report 6378991-1 (Version None)
Quarter: 2009Q3

REPORT INFORMATION
  Report Type: 
  Country: None (occurrence: None)
  Receive Date: 20090928
  Receipt Date: 20090917
  Transmission Date: 20100115
  Serious: Yes (Other)
  Sender: FDA-Public Use
  Company Number: PHHY2009GB40479

PATIENT
  Age: 78 Year
  Sex: Male

DRUGS (2)
  1. PAMIDRONATE DISODIUM [Suspect]
     Indication: METASTASES TO SPINE
     Route: 042
  2. PREDNISOLONE [Concomitant]
     Route: 048

REACTIONS (14)
  - BONE CYST [None]
  - BONE CYST EXCISION [None]
  - BONE PAIN [None]
  - INFECTION [None]
  - INTERNAL FIXATION OF FRACTURE [None]
  - JAW FRACTURE [None]
  - JOINT CREPITATION [None]
  - MALOCCLUSION [None]
  - OSTEOLYSIS [None]
  - OSTEONECROSIS [None]
  - PAIN [None]
  - PERICORONITIS [None]
  - TOOTH EXTRACTION [None]
  - TOOTH IMPACTED [None]
